FAERS Safety Report 8835180 (Version 1)
Quarter: 2012Q4

REPORT INFORMATION
  Report Type: 
  Country: US (occurrence: US)
  Receive Date: 20121011
  Receipt Date: 20121011
  Transmission Date: 20130627
  Serious: Yes (Disabling, Other)
  Sender: FDA-Public Use
  Company Number: US-PFIZER INC-2012247714

PATIENT
  Age: 59 Year
  Sex: Male
  Weight: 90.7 kg

DRUGS (1)
  1. VIAGRA [Suspect]
     Indication: ERECTILE DYSFUNCTION
     Dosage: 50 mg, UNK
     Route: 048

REACTIONS (4)
  - Glaucoma [Not Recovered/Not Resolved]
  - Visual field defect [Not Recovered/Not Resolved]
  - Optic nerve disorder [Not Recovered/Not Resolved]
  - Cataract [Unknown]
